FAERS Safety Report 13917490 (Version 4)
Quarter: 2018Q1

REPORT INFORMATION
  Report Type: Spontaneous
  Country: JP (occurrence: JP)
  Receive Date: 20170829
  Receipt Date: 20180202
  Transmission Date: 20180508
  Serious: Yes (Other)
  Sender: FDA-Public Use
  Company Number: JP-JNJFOC-20170819488

PATIENT
  Age: 8 Decade
  Sex: Male
  Weight: 65 kg

DRUGS (7)
  1. DOVOBET [Concomitant]
     Active Substance: BETAMETHASONE\CALCIPOTRIENE
     Indication: PSORIASIS
     Route: 061
     Dates: start: 20130927
  2. STELARA [Suspect]
     Active Substance: USTEKINUMAB
     Indication: PSORIASIS
     Route: 058
     Dates: start: 20120726, end: 20121116
  3. HIRUDOID [Concomitant]
     Active Substance: GLYCOSAMINOGLYCANS
     Indication: ECZEMA
     Route: 061
     Dates: start: 20130927
  4. STELARA [Suspect]
     Active Substance: USTEKINUMAB
     Indication: PSORIASIS
     Route: 058
     Dates: start: 20170131, end: 20170523
  5. DIACORT [Concomitant]
     Active Substance: DIFLORASONE DIACETATE
     Indication: ECZEMA
     Route: 061
     Dates: start: 20130927
  6. STELARA [Suspect]
     Active Substance: USTEKINUMAB
     Indication: PSORIASIS
     Route: 058
     Dates: start: 201309
  7. PANDEL [Concomitant]
     Active Substance: HYDROCORTISONE PROBUTATE
     Indication: ECZEMA
     Route: 061
     Dates: start: 20130927

REACTIONS (2)
  - Neurodermatitis [Not Recovered/Not Resolved]
  - Erythema multiforme [Recovered/Resolved]

NARRATIVE: CASE EVENT DATE: 20170228
